FAERS Safety Report 15606913 (Version 2)
Quarter: 2018Q4

REPORT INFORMATION
  Report Type: Spontaneous
  Country: US (occurrence: US)
  Receive Date: 20181112
  Receipt Date: 20181215
  Transmission Date: 20190205
  Serious: Yes (Other)
  Sender: FDA-Public Use
  Company Number: US-JNJFOC-20181034190

PATIENT
  Sex: Male

DRUGS (3)
  1. ERLEADA [Suspect]
     Active Substance: APALUTAMIDE
     Indication: PROSTATE CANCER
     Route: 048
     Dates: start: 20180418
  2. LUPRON [Concomitant]
     Active Substance: LEUPROLIDE ACETATE
  3. BIOBEADS PROBIOTIC ACIDOPHILUS [Concomitant]

REACTIONS (1)
  - Drug ineffective [Unknown]
